FAERS Safety Report 8360093-6 (Version None)
Quarter: 2012Q2

REPORT INFORMATION
  Report Type: 
  Country: None (occurrence: None)
  Receive Date: 20120515
  Receipt Date: 20110602
  Transmission Date: 20120825
  Serious: No
  Sender: FDA-Public Use
  Company Number: US-ALEXION-A201100782

PATIENT
  Sex: Male

DRUGS (6)
  1. FOLIC ACID [Concomitant]
     Dosage: 7 MG, UNK
  2. LORTAB [Concomitant]
     Dosage: 7.5 MG, UNK
  3. PRILOSEC [Concomitant]
     Dosage: UNK
  4. CLONAZEPAM [Concomitant]
     Dosage: 1 MG, UNK
  5. SOLIRIS [Suspect]
     Indication: PAROXYSMAL NOCTURNAL HAEMOGLOBINURIA
     Dosage: UNK
     Route: 042
     Dates: start: 20110524
  6. ICAR-C PLUS [Concomitant]
     Dosage: 100 MG, UNK

REACTIONS (2)
  - PLATELET TRANSFUSION [None]
  - TRANSFUSION [None]
